FAERS Safety Report 8822981 (Version 1)
Quarter: 2012Q4

REPORT INFORMATION
  Report Type: 
  Country: JP (occurrence: US)
  Receive Date: 20121003
  Receipt Date: 20121003
  Transmission Date: 20130627
  Serious: Yes (Other)
  Sender: FDA-Public Use
  Company Number: US-BRISTOL-MYERS SQUIBB COMPANY-17010091

PATIENT
  Age: 44 Year
  Sex: Female

DRUGS (1)
  1. MITOMYCIN-C [Suspect]
     Indication: PSEUDOMYXOMA PERITONEI
     Dosage: Injection
10mg:Jan06-Jan06
     Route: 065
     Dates: start: 200601, end: 200601

REACTIONS (2)
  - Starvation [Unknown]
  - Fatigue [Unknown]
